FAERS Safety Report 8510002-1 (Version None)
Quarter: 2012Q3

REPORT INFORMATION
  Report Type: 
  Country: None (occurrence: None)
  Receive Date: 20120713
  Receipt Date: 20120709
  Transmission Date: 20120928
  Serious: Yes (Death, Hospitalization, Other)
  Sender: FDA-Public Use
  Company Number: SK-ELI_LILLY_AND_COMPANY-SK201207003597

PATIENT
  Sex: Female

DRUGS (11)
  1. DIGOXIN [Concomitant]
  2. REQUIP [Concomitant]
  3. CAVINTON FORTE [Concomitant]
  4. FORTEO [Suspect]
     Indication: OSTEOPOROSIS POSTMENOPAUSAL
     Dosage: 20 UG, QD
     Dates: start: 20111205, end: 20120630
  5. PREDUCTAL MR [Concomitant]
  6. BISOPROLOL FUMARATE [Concomitant]
  7. TIZANIDINE HYDROCHLORIDE [Concomitant]
  8. ALLOPURINOL [Concomitant]
  9. DEGAN [Concomitant]
  10. LOMAC [Concomitant]
  11. ASPIRIN [Concomitant]

REACTIONS (6)
  - FEMUR FRACTURE [None]
  - PULMONARY EMBOLISM [None]
  - DEHYDRATION [None]
  - ATRIAL FIBRILLATION [None]
  - CACHEXIA [None]
  - ARTERIOSCLEROSIS [None]
